FAERS Safety Report 9675616 (Version 2)
Quarter: 2015Q4

REPORT INFORMATION
  Report Type: Report from Study
  Country: US (occurrence: US)
  Receive Date: 20131107
  Receipt Date: 20151026
  Transmission Date: 20160305
  Serious: Yes (Death)
  Sender: FDA-Public Use
  Company Number: US-ROCHE-1298760

PATIENT
  Age: 52 Year
  Sex: Male

DRUGS (9)
  1. LUCENTIS [Suspect]
     Active Substance: RANIBIZUMAB
     Indication: PRESUMED OCULAR HISTOPLASMOSIS SYNDROME
  2. XELODA [Suspect]
     Active Substance: CAPECITABINE
     Indication: PRODUCT USED FOR UNKNOWN INDICATION
     Dosage: 4TABS Q AM,3TABS Q PM FOR 7DAYS
     Route: 065
     Dates: start: 20120216
  3. CISPLATIN. [Concomitant]
     Active Substance: CISPLATIN
  4. LUCENTIS [Suspect]
     Active Substance: RANIBIZUMAB
     Indication: NEOVASCULAR AGE-RELATED MACULAR DEGENERATION
  5. LUCENTIS [Suspect]
     Active Substance: RANIBIZUMAB
     Indication: AGE-RELATED MACULAR DEGENERATION
     Dosage: 27/SEP/2013 GIVEN IN OD
     Route: 050
  6. ELOXATIN [Concomitant]
     Active Substance: OXALIPLATIN
  7. LUCENTIS [Suspect]
     Active Substance: RANIBIZUMAB
     Indication: NEOVASCULAR AGE-RELATED MACULAR DEGENERATION
  8. LUCENTIS [Suspect]
     Active Substance: RANIBIZUMAB
     Indication: CHOROIDAL NEOVASCULARISATION
  9. LUCENTIS [Suspect]
     Active Substance: RANIBIZUMAB
     Indication: ARTERIOSCLEROTIC RETINOPATHY

REACTIONS (4)
  - Vision blurred [Unknown]
  - Visual impairment [Unknown]
  - Visual acuity reduced [Not Recovered/Not Resolved]
  - Neoplasm malignant [Fatal]

NARRATIVE: CASE EVENT DATE: 20130802
